FAERS Safety Report 9958994 (Version 1)
Quarter: 2014Q1

REPORT INFORMATION
  Report Type: Report from Study
  Country: US (occurrence: US)
  Receive Date: 20140305
  Receipt Date: 20140305
  Transmission Date: 20141002
  Serious: Yes (Hospitalization)
  Sender: FDA-Public Use
  Company Number: US-ABBVIE-13P-163-1101636-00

PATIENT
  Age: 29 Year
  Sex: Female

DRUGS (5)
  1. HUMIRA [Suspect]
     Indication: COLITIS ULCERATIVE
     Dates: start: 20130107, end: 20130424
  2. VITAMINS [Concomitant]
     Indication: PRODUCT USED FOR UNKNOWN INDICATION
  3. LIALDA [Concomitant]
     Indication: COLITIS ULCERATIVE
  4. CELEXA [Concomitant]
     Indication: ANXIETY
  5. YAZ [Concomitant]
     Indication: CONTRACEPTION

REACTIONS (4)
  - Pneumonia [Not Recovered/Not Resolved]
  - Staphylococcal infection [Not Recovered/Not Resolved]
  - Psoriasis [Not Recovered/Not Resolved]
  - Chest pain [Unknown]
